FAERS Safety Report 4279610-0 (Version None)
Quarter: 2004Q1

REPORT INFORMATION
  Report Type: 
  Country: None (occurrence: None)
  Receive Date: 20040123
  Receipt Date: 20040116
  Transmission Date: 20041129
  Serious: Yes (Life-Threatening)
  Sender: FDA-Public Use
  Company Number: 200313891

PATIENT
  Age: 56 Year
  Sex: Female
  Weight: 61.2356 kg

DRUGS (1)
  1. BOTOX COSMETIC [Suspect]
     Indication: SKIN WRINKLING
     Dosage: 40 UNITS PRN IM
     Route: 030
     Dates: start: 20030612

REACTIONS (4)
  - PULSE ABSENT [None]
  - REFUSAL OF TREATMENT BY PATIENT [None]
  - RESPIRATORY ARREST [None]
  - SYNCOPE VASOVAGAL [None]
